FAERS Safety Report 19253898 (Version 1)
Quarter: 2021Q2

REPORT INFORMATION
  Report Type: Spontaneous
  Country: US (occurrence: US)
  Receive Date: 20210513
  Receipt Date: 20210513
  Transmission Date: 20210717
  Serious: Yes (Hospitalization)
  Sender: FDA-Public Use
  Company Number: None

PATIENT
  Age: 53 Year
  Sex: Male

DRUGS (1)
  1. DOXYCYCL HYC [Suspect]
     Active Substance: DOXYCYCLINE HYCLATE
     Indication: SPERMATIC CORD INFLAMMATION
     Route: 048

REACTIONS (1)
  - Hospitalisation [None]
